FAERS Safety Report 21466202 (Version 1)
Quarter: 2022Q4

REPORT INFORMATION
  Report Type: Report from Study
  Country: IN (occurrence: IN)
  Receive Date: 20221017
  Receipt Date: 20221017
  Transmission Date: 20230113
  Serious: Yes (Other)
  Sender: FDA-Public Use
  Company Number: IN-NOVARTISPH-NVSC2020IN362897

PATIENT
  Sex: Female

DRUGS (1)
  1. RIBOCICLIB [Suspect]
     Active Substance: RIBOCICLIB
     Indication: Product used for unknown indication
     Dosage: 200 MG, TID
     Route: 065

REACTIONS (9)
  - Aortic injury [Unknown]
  - Mitral valve incompetence [Unknown]
  - Nodule [Unknown]
  - Bone lesion [Unknown]
  - Spinal osteoarthritis [Unknown]
  - Pulmonary septal thickening [Unknown]
  - Spinal flattening [Unknown]
  - Thecal sac compression [Unknown]
  - Intervertebral disc space narrowing [Unknown]
